FAERS Safety Report 9322287 (Version 1)
Quarter: 2013Q2

REPORT INFORMATION
  Report Type: Spontaneous
  Country: NL (occurrence: NL)
  Receive Date: 20130531
  Receipt Date: 20130531
  Transmission Date: 20140414
  Serious: Yes (Hospitalization)
  Sender: FDA-Public Use
  Company Number: NL-GLAXOSMITHKLINE-B0895856A

PATIENT
  Age: 46 Year
  Sex: Male

DRUGS (15)
  1. LAMOTRIGINE [Suspect]
     Indication: EPILEPSY
     Dosage: 25MG PER DAY
     Route: 048
     Dates: start: 20130503
  2. HYDROCHLOROTHIAZIDE [Concomitant]
     Dosage: 12.5MG PER DAY
     Route: 048
  3. OMEPRAZOLE [Concomitant]
     Dosage: 40MG PER DAY
     Route: 048
  4. ACETYLSALICYLZUUR [Concomitant]
     Dosage: 80MG PER DAY
     Route: 048
  5. HALDOL [Concomitant]
     Route: 048
  6. DIAZEPAM [Concomitant]
     Route: 054
  7. KETOCONAZOL [Concomitant]
  8. MICONAZOL [Concomitant]
  9. VASELINE + LANETTE CREAM [Concomitant]
  10. KETOCONAZOLE [Concomitant]
  11. DEVARON [Concomitant]
     Dosage: 800IU PER DAY
     Route: 048
  12. PERINDOPRIL [Concomitant]
     Dosage: 4MG PER DAY
     Route: 048
  13. PRAVASTATINE [Concomitant]
     Dosage: 40MG PER DAY
     Route: 048
  14. DEPAKINE CHRONO [Concomitant]
     Dosage: 300MG THREE TIMES PER DAY
     Route: 048
  15. FERROFUMARAAT [Concomitant]
     Dosage: 200MG PER DAY
     Route: 048

REACTIONS (5)
  - Drug reaction with eosinophilia and systemic symptoms [Recovering/Resolving]
  - Pyrexia [Unknown]
  - Leukocytoclastic vasculitis [Unknown]
  - Thrombocytopenia [Unknown]
  - Hepatic enzyme increased [Unknown]
